FAERS Safety Report 5419883-1 (Version None)
Quarter: 2007Q3

REPORT INFORMATION
  Report Type: 
  Country: None (occurrence: None)
  Receive Date: 20070820
  Receipt Date: 20070808
  Transmission Date: 20080115
  Serious: Yes (Other)
  Sender: FDA-Public Use
  Company Number: US-PFIZER INC-2006100017

PATIENT
  Age: 38 Year
  Sex: Male
  Weight: 102.5 kg

DRUGS (11)
  1. NEURONTIN [Suspect]
     Indication: CONVULSION
  2. NEURONTIN [Suspect]
     Indication: MENTAL DISORDER
  3. GEODON [Suspect]
  4. ZOLOFT [Suspect]
  5. TRILEPTAL [Concomitant]
  6. CLONAZEPAM [Concomitant]
  7. VITAMIN CAP [Concomitant]
  8. FOLIC ACID [Concomitant]
  9. SEROQUEL [Concomitant]
  10. LUVOX [Concomitant]
  11. RISPERDAL [Concomitant]

REACTIONS (8)
  - BALANCE DISORDER [None]
  - CONVULSION [None]
  - DRUG LEVEL CHANGED [None]
  - FEELING ABNORMAL [None]
  - GRIP STRENGTH DECREASED [None]
  - HEART RATE INCREASED [None]
  - NAUSEA [None]
  - UNEVALUABLE EVENT [None]
